FAERS Safety Report 6282508-X (Version None)
Quarter: 2009Q3

REPORT INFORMATION
  Report Type: 
  Country: None (occurrence: None)
  Receive Date: 20090724
  Receipt Date: 20090715
  Transmission Date: 20100115
  Serious: Yes (Other)
  Sender: FDA-Public Use
  Company Number: US-AVENTIS-200916240US

PATIENT
  Sex: Male

DRUGS (5)
  1. LANTUS [Suspect]
     Dates: start: 20040101
  2. OPTICLIK (INSULIN INJECTION PEN) [Suspect]
     Dates: start: 20050101
  3. APIDRA [Suspect]
     Dosage: DOSE QUANTITY: 9
     Dates: start: 20040101
  4. OPTICLIK (INSULIN INJECTION PEN) [Suspect]
     Dates: start: 20050101
  5. LONG LIST DOESN'T RECALL [Concomitant]
     Dosage: DOSE: UNK

REACTIONS (1)
  - CATARACT [None]
